FAERS Safety Report 23894293 (Version 1)
Quarter: 2024Q2

REPORT INFORMATION
  Report Type: Spontaneous
  Country: US (occurrence: None)
  Receive Date: 20240524
  Receipt Date: 20240524
  Transmission Date: 20240715
  Serious: No
  Sender: FDA-Public Use
  Company Number: US-ROCHE-3411902

PATIENT
  Age: 62 Year
  Sex: Female

DRUGS (1)
  1. OCREVUS [Suspect]
     Active Substance: OCRELIZUMAB
     Indication: Multiple sclerosis
     Dosage: SECOND DOSE SHE RECEIVED ON 27/JUN/2023
     Route: 065
     Dates: start: 20230613

REACTIONS (4)
  - Muscular weakness [Not Recovered/Not Resolved]
  - Memory impairment [Unknown]
  - Hypoaesthesia [Not Recovered/Not Resolved]
  - Therapeutic product effect decreased [Unknown]
